FAERS Safety Report 4968623-9 (Version None)
Quarter: 2006Q2

REPORT INFORMATION
  Report Type: 
  Country: None (occurrence: None)
  Receive Date: 20060405
  Receipt Date: 20060322
  Transmission Date: 20061013
  Serious: Yes (Other)
  Sender: FDA-Public Use
  Company Number: 2006029446

PATIENT
  Age: 71 Year
  Sex: Female

DRUGS (2)
  1. CLINDAMYCIN PHOSPHATE [Suspect]
     Indication: PNEUMONIA BACTERIAL
     Dosage: 1200 MG (600 MG, 2 IN 1 D), INTRAVENOUS
     Route: 042
     Dates: start: 20041124, end: 20041130
  2. SEPAMIT-R (NIFEDIPINE) (NIFEDIPINE) [Suspect]
     Indication: HYPERTENSION
     Dosage: 20 MG (PRN), ORAL
     Route: 048
     Dates: start: 20041118, end: 20041126

REACTIONS (1)
  - TOXIC EPIDERMAL NECROLYSIS [None]
